FAERS Safety Report 10086571 (Version 4)
Quarter: 2014Q3

REPORT INFORMATION
  Report Type: Spontaneous
  Country: IT (occurrence: IT)
  Receive Date: 20140418
  Receipt Date: 20140722
  Transmission Date: 20150326
  Serious: Yes (Other)
  Sender: FDA-Public Use
  Company Number: IT-PFIZER INC-2014107895

PATIENT
  Age: 58 Year
  Sex: Male

DRUGS (4)
  1. MINIAS [Suspect]
     Active Substance: LORMETAZEPAM
     Dosage: 40 MG, TOTAL
     Dates: start: 20130712, end: 20130712
  2. NORVASC [Suspect]
     Active Substance: AMLODIPINE BESYLATE
     Dosage: 200 MG, TOTAL
     Route: 048
     Dates: start: 20130712, end: 20130712
  3. ENALAPRIL MALEATE. [Suspect]
     Active Substance: ENALAPRIL MALEATE
     Dosage: 600 MG, TOTAL
     Route: 048
     Dates: start: 20130712, end: 20130712
  4. MUSCORIL [Suspect]
     Active Substance: THIOCOLCHICOSIDE
     Dosage: 80 MG, TOTAL
     Route: 048
     Dates: start: 20130712, end: 20130712

REACTIONS (4)
  - Intentional overdose [Recovering/Resolving]
  - Headache [Recovering/Resolving]
  - Intentional self-injury [Recovering/Resolving]
  - Depressed level of consciousness [Recovering/Resolving]

NARRATIVE: CASE EVENT DATE: 20130712
